FAERS Safety Report 5826317-1 (Version None)
Quarter: 2008Q3

REPORT INFORMATION
  Report Type: 
  Country: None (occurrence: None)
  Receive Date: 20080723
  Receipt Date: 20080707
  Transmission Date: 20090109
  Serious: Yes (Death)
  Sender: FDA-Public Use
  Company Number: ENTC2008-0202

PATIENT
  Age: 39 Year
  Sex: Male

DRUGS (5)
  1. STALEVO 100 [Suspect]
     Dosage: 50/12, 5/200 MG ORAL
     Route: 048
     Dates: start: 20070510
  2. EXELON [Suspect]
     Dosage: 6 MG ( 3 MG, 2 IN 1 D) ORAL
     Route: 048
     Dates: start: 20050728
  3. MADOPAR [Suspect]
     Dosage: ORAL
     Route: 048
     Dates: start: 20050728
  4. MIRAPEX [Suspect]
     Dosage: 1.62 MG (0.54 MG, 3 IN 1 D); 3.15 MG (1.05 MG, 3 IN 1 D)
     Dates: start: 20070622
  5. SINEMET [Suspect]
     Dosage: ORAL
     Route: 048
     Dates: start: 20060425

REACTIONS (1)
  - UPPER GASTROINTESTINAL HAEMORRHAGE [None]
